FAERS Safety Report 5800507-6 (Version None)
Quarter: 2008Q3

REPORT INFORMATION
  Report Type: 
  Country: None (occurrence: None)
  Receive Date: 20080703
  Receipt Date: 20080627
  Transmission Date: 20090109
  Serious: Yes (Death, Congenital Anomaly)
  Sender: FDA-Public Use
  Company Number: B0527088B

PATIENT

DRUGS (6)
  1. RANIPLEX [Suspect]
  2. ALDACTONE [Suspect]
     Dosage: 75MG PER DAY
     Dates: end: 20071207
  3. ZOLOFT [Suspect]
     Dosage: 50MG PER DAY
     Dates: end: 20071123
  4. LYSANXIA [Suspect]
     Dates: end: 20071207
  5. OMEPRAZOLE [Suspect]
  6. INSULINE [Concomitant]

REACTIONS (2)
  - CONGENITAL ANOMALY [None]
  - DRUG EXPOSURE DURING PREGNANCY [None]
